FAERS Safety Report 4315862-6 (Version None)
Quarter: 2004Q1

REPORT INFORMATION
  Report Type: 
  Country: None (occurrence: None)
  Receive Date: 20040310
  Receipt Date: 20040223
  Transmission Date: 20041129
  Serious: Yes (Other)
  Sender: FDA-Public Use
  Company Number: PHEH2004US02292

PATIENT
  Age: 73 Year
  Sex: Male

DRUGS (8)
  1. VISUDYNE [Suspect]
     Indication: MACULAR DEGENERATION
     Dosage: 2 MG/ML ONCE  IV
     Route: 042
     Dates: start: 20040220, end: 20040220
  2. TENORMIN [Concomitant]
  3. ZESTRIL [Concomitant]
  4. TIMOPTIC [Concomitant]
  5. XALATAN [Concomitant]
  6. ALPHAGAN [Concomitant]
  7. DIAMOX [Concomitant]
  8. ZIMOR [Concomitant]

REACTIONS (5)
  - BLOOD PRESSURE INCREASED [None]
  - CHEST DISCOMFORT [None]
  - DYSPNOEA [None]
  - GROIN PAIN [None]
  - RHABDOMYOLYSIS [None]
